FAERS Safety Report 16696054 (Version 1)
Quarter: 2019Q3

REPORT INFORMATION
  Report Type: Spontaneous
  Country: IN (occurrence: IN)
  Receive Date: 20190813
  Receipt Date: 20190813
  Transmission Date: 20191004
  Serious: Yes (Other)
  Sender: FDA-Public Use
  Company Number: IN-SUN PHARMACEUTICAL INDUSTRIES LTD-2019R1-198837

PATIENT
  Age: 50 Year
  Sex: Male

DRUGS (2)
  1. IMATINIB. [Suspect]
     Active Substance: IMATINIB MESYLATE
     Indication: CHRONIC MYELOID LEUKAEMIA
     Dosage: UNK UNK, DAILY
     Route: 065
     Dates: start: 201404
  2. DASATINIB. [Suspect]
     Active Substance: DASATINIB
     Indication: CYTOGENETIC ABNORMALITY
     Route: 065

REACTIONS (1)
  - Hodgkin^s disease [Recovering/Resolving]
